FAERS Safety Report 8521154-1 (Version None)
Quarter: 2012Q3

REPORT INFORMATION
  Report Type: 
  Country: None (occurrence: None)
  Receive Date: 20120712
  Receipt Date: 20120712
  Transmission Date: 20120928
  Serious: Yes (Other)
  Sender: FDA-Public Use
  Company Number: None

PATIENT
  Age: 29 Year
  Sex: Female
  Weight: 65.7716 kg

DRUGS (1)
  1. LARIAM [Suspect]
     Indication: MALARIA
     Dosage: 1 TABLET WEEKLY PO
     Route: 048
     Dates: start: 20111007, end: 20111124

REACTIONS (3)
  - ANXIETY [None]
  - DEPRESSION [None]
  - HALLUCINATION [None]
